FAERS Safety Report 9013946 (Version 1)
Quarter: 2013Q1

REPORT INFORMATION
  Report Type: Spontaneous
  Country: US (occurrence: None)
  Receive Date: 20130109
  Receipt Date: 20130109
  Transmission Date: 20140127
  Serious: Yes (Other)
  Sender: FDA-Public Use
  Company Number: None

PATIENT
  Age: 22 Year
  Sex: Female
  Weight: 54.43 kg

DRUGS (2)
  1. MIXED AMPHETAMINE, 20 MG, SALTS XI [Suspect]
     Route: 048
     Dates: start: 20120706, end: 20120709
  2. PAROXETINE [Concomitant]

REACTIONS (3)
  - Migraine [None]
  - Irritability [None]
  - Drug effect decreased [None]
